FAERS Safety Report 12714480 (Version 1)
Quarter: 2016Q3

REPORT INFORMATION
  Report Type: Spontaneous
  Country: US (occurrence: US)
  Receive Date: 20160905
  Receipt Date: 20160905
  Transmission Date: 20161109
  Serious: No
  Sender: FDA-Public Use
  Company Number: US-JAZZ-2016-US-008910

PATIENT
  Age: 35 Year
  Sex: Female

DRUGS (28)
  1. SEROQUEL [Concomitant]
     Active Substance: QUETIAPINE FUMARATE
  2. ACYCLOVIR. [Concomitant]
     Active Substance: ACYCLOVIR
  3. TEMAZEPAM. [Concomitant]
     Active Substance: TEMAZEPAM
  4. LUNESTA [Concomitant]
     Active Substance: ESZOPICLONE
  5. RISPERDAL [Concomitant]
     Active Substance: RISPERIDONE
  6. BUTRANS [Concomitant]
     Active Substance: BUPRENORPHINE
  7. ABILIFY [Concomitant]
     Active Substance: ARIPIPRAZOLE
  8. MIRAPEX [Concomitant]
     Active Substance: PRAMIPEXOLE DIHYDROCHLORIDE
  9. XYREM [Suspect]
     Active Substance: SODIUM OXYBATE
     Dosage: 4.5 G, BID
     Route: 048
     Dates: start: 201601
  10. DEPO-PROVERA [Concomitant]
     Active Substance: MEDROXYPROGESTERONE ACETATE
  11. HYDROXYZINE HCL [Concomitant]
     Active Substance: HYDROXYZINE HYDROCHLORIDE
  12. NUVIGIL [Concomitant]
     Active Substance: ARMODAFINIL
  13. NORTRIPTYLINE HCL [Concomitant]
     Active Substance: NORTRIPTYLINE HYDROCHLORIDE
  14. TOPAMAX [Concomitant]
     Active Substance: TOPIRAMATE
  15. CLONAZEPAM. [Concomitant]
     Active Substance: CLONAZEPAM
  16. ELMIRON [Concomitant]
     Active Substance: PENTOSAN POLYSULFATE SODIUM
  17. XYREM [Suspect]
     Active Substance: SODIUM OXYBATE
     Dosage: DOSE ADJUSTMENTS
     Route: 048
  18. TERAZOSIN [Concomitant]
     Active Substance: TERAZOSIN\TERAZOSIN HYDROCHLORIDE
  19. VOLTAREN [Concomitant]
     Active Substance: DICLOFENAC SODIUM
  20. HYDROCODONE BITARTRATE AND ACETAMINOPHEN [Concomitant]
     Active Substance: ACETAMINOPHEN\HYDROCODONE BITARTRATE
  21. XYREM [Suspect]
     Active Substance: SODIUM OXYBATE
     Indication: NARCOLEPSY
     Dosage: 2.25 G, BID
     Route: 048
     Dates: start: 201108, end: 201110
  22. FLONASE [Concomitant]
     Active Substance: FLUTICASONE PROPIONATE
  23. LITHIUM CARBONATE. [Concomitant]
     Active Substance: LITHIUM CARBONATE
  24. METHADONE HCL [Concomitant]
     Active Substance: METHADONE HYDROCHLORIDE
  25. MORPHINE SULF [Concomitant]
     Active Substance: MORPHINE SULFATE
  26. DITROPAN [Concomitant]
     Active Substance: OXYBUTYNIN CHLORIDE
  27. LEXAPRO [Concomitant]
     Active Substance: ESCITALOPRAM OXALATE
  28. METOPROLOL TARTRATE. [Concomitant]
     Active Substance: METOPROLOL TARTRATE

REACTIONS (4)
  - Hypothyroidism [Unknown]
  - Anaemia [Unknown]
  - Fatigue [Unknown]
  - Hypovitaminosis [Unknown]

NARRATIVE: CASE EVENT DATE: 201511
